FAERS Safety Report 16677376 (Version 1)
Quarter: 2019Q3

REPORT INFORMATION
  Report Type: Spontaneous
  Country: US (occurrence: US)
  Receive Date: 20190807
  Receipt Date: 20190807
  Transmission Date: 20191004
  Serious: Yes (Other)
  Sender: FDA-Public Use
  Company Number: US-AMGEN-USASP2019122675

PATIENT
  Age: 43 Year
  Sex: Male

DRUGS (1)
  1. BLINCYTO [Suspect]
     Active Substance: BLINATUMOMAB
     Indication: ACUTE LYMPHOCYTIC LEUKAEMIA RECURRENT
     Dosage: 9 MICROGRAM, QD
     Route: 065
     Dates: start: 20190715, end: 20190717

REACTIONS (1)
  - Hyporesponsive to stimuli [Recovering/Resolving]

NARRATIVE: CASE EVENT DATE: 20190717
